FAERS Safety Report 19967665 (Version 1)
Quarter: 2021Q4

REPORT INFORMATION
  Report Type: Spontaneous
  Country: US (occurrence: US)
  Receive Date: 20211018
  Receipt Date: 20211018
  Transmission Date: 20220303
  Serious: Yes (Hospitalization)
  Sender: FDA-Public Use
  Company Number: None

PATIENT
  Age: 69 Year
  Sex: Female

DRUGS (11)
  1. GILENYA [Suspect]
     Active Substance: FINGOLIMOD HYDROCHLORIDE
     Indication: Multiple sclerosis
     Route: 048
     Dates: start: 20180217
  2. INSULIN LISP [Concomitant]
  3. SERTRALINE [Concomitant]
     Active Substance: SERTRALINE HYDROCHLORIDE
  4. LANTUS [Concomitant]
     Active Substance: INSULIN GLARGINE
  5. LISINOPRIL [Concomitant]
     Active Substance: LISINOPRIL
  6. DICLOFENAC [Concomitant]
     Active Substance: DICLOFENAC
  7. ATORVASTATIN [Concomitant]
     Active Substance: ATORVASTATIN
  8. CHLORTHALIDONE [Concomitant]
     Active Substance: CHLORTHALIDONE
  9. TRULICITY [Concomitant]
     Active Substance: DULAGLUTIDE
  10. JARDIANCE [Concomitant]
     Active Substance: EMPAGLIFLOZIN
  11. GLIPIZIDE [Concomitant]
     Active Substance: GLIPIZIDE

REACTIONS (3)
  - Multiple sclerosis relapse [None]
  - Cerebrovascular accident [None]
  - Product dose omission issue [None]

NARRATIVE: CASE EVENT DATE: 20211001
